FAERS Safety Report 6379220-5 (Version None)
Quarter: 2009Q3

REPORT INFORMATION
  Report Type: 
  Country: None (occurrence: None)
  Receive Date: 20090923
  Receipt Date: 20090923
  Transmission Date: 20100115
  Serious: No
  Sender: FDA-Public Use
  Company Number: None

PATIENT
  Age: 26 Year
  Sex: Female
  Weight: 72.5755 kg

DRUGS (1)
  1. CREST PRO HEALTH CREST [Suspect]
     Indication: DENTAL DISORDER PROPHYLAXIS
     Dosage: 1 DOSE DAILY PO
     Route: 048
     Dates: start: 20090903, end: 20090909

REACTIONS (2)
  - APHTHOUS STOMATITIS [None]
  - GINGIVAL PAIN [None]
